FAERS Safety Report 7823073-2 (Version None)
Quarter: 2011Q4

REPORT INFORMATION
  Report Type: 
  Country: None (occurrence: None)
  Receive Date: 20111018
  Receipt Date: 20110701
  Transmission Date: 20120403
  Serious: No
  Sender: FDA-Public Use
  Company Number: US-ASTRAZENECA-2011SE39637

PATIENT
  Age: 72 Year
  Sex: Male

DRUGS (5)
  1. SOTALOL HCL [Concomitant]
  2. SYMBICORT [Suspect]
     Indication: CHRONIC OBSTRUCTIVE PULMONARY DISEASE
     Dosage: 160-4.5 MCG, BID
     Route: 055
  3. BENICAR [Concomitant]
  4. SINGULAIR [Concomitant]
  5. LIPITOR [Concomitant]

REACTIONS (1)
  - INCREASED UPPER AIRWAY SECRETION [None]
